FAERS Safety Report 15933578 (Version 5)
Quarter: 2019Q1

REPORT INFORMATION
  Report Type: Spontaneous
  Country: CZ (occurrence: CZ)
  Receive Date: 20190207
  Receipt Date: 20190321
  Transmission Date: 20190417
  Serious: Yes (Other)
  Sender: FDA-Public Use
  Company Number: CZ-MYLANLABS-2019M1010823

PATIENT
  Age: 55 Year
  Sex: Male

DRUGS (2)
  1. PREDNISONE. [Suspect]
     Active Substance: PREDNISONE
     Indication: SARCOIDOSIS
     Dosage: UNK
     Route: 048
     Dates: start: 201505
  2. METHOTREXATE. [Suspect]
     Active Substance: METHOTREXATE
     Indication: SARCOIDOSIS
     Dosage: UNK
     Route: 048
     Dates: start: 201505

REACTIONS (6)
  - Cataract [Unknown]
  - Chest X-ray abnormal [Unknown]
  - Sarcoidosis [Unknown]
  - Polyneuropathy [Unknown]
  - Steroid diabetes [Unknown]
  - Product use in unapproved indication [Unknown]
